FAERS Safety Report 4498580-3 (Version None)
Quarter: 2004Q4

REPORT INFORMATION
  Report Type: 
  Country: None (occurrence: None)
  Receive Date: 20041108
  Receipt Date: 20041025
  Transmission Date: 20050328
  Serious: Yes (Hospitalization)
  Sender: FDA-Public Use
  Company Number: 2004-BP-10716BP

PATIENT
  Age: 72 Year
  Sex: Female
  Weight: 67.6 kg

DRUGS (2)
  1. MOBIC [Suspect]
     Indication: FIBROMYALGIA
     Dosage: 15 MG (15 MG), PO
     Route: 048
     Dates: start: 20040930, end: 20041020
  2. MOBIC [Suspect]
     Indication: OSTEOARTHRITIS
     Dosage: 15 MG (15 MG), PO
     Route: 048
     Dates: start: 20040930, end: 20041020

REACTIONS (7)
  - DRUG INEFFECTIVE [None]
  - DUODENAL ULCER HAEMORRHAGE [None]
  - FAECES DISCOLOURED [None]
  - FLUID RETENTION [None]
  - JOINT SWELLING [None]
  - OEDEMA PERIPHERAL [None]
  - WEIGHT INCREASED [None]
